FAERS Safety Report 23463631 (Version 1)
Quarter: 2024Q1

REPORT INFORMATION
  Report Type: Spontaneous
  Country: IT (occurrence: IT)
  Receive Date: 20240131
  Receipt Date: 20240131
  Transmission Date: 20240410
  Serious: Yes (Other)
  Sender: FDA-Public Use
  Company Number: None

PATIENT
  Age: 83 Year
  Sex: Male

DRUGS (4)
  1. XARELTO [Suspect]
     Active Substance: RIVAROXABAN
     Indication: Circulating anticoagulant
     Dosage: 20 MG, QD
     Route: 048
     Dates: start: 202007, end: 202307
  2. BISOPROLOL [Concomitant]
     Active Substance: BISOPROLOL\BISOPROLOL FUMARATE
     Indication: Hypertension
     Dosage: CONGESCOR*28CPR RIV 2,5MG. SCHEMA POSOLOGICO: 1 CPR AL DI
     Route: 048
     Dates: start: 202006
  3. RAMIPRIL [Concomitant]
     Active Substance: RAMIPRIL
     Indication: Hypertension
     Dosage: TRIATEC*28CPR DIV 2,5MG. SCHEMA POSOLOGICO: 1 CPR AL DI
     Route: 048
     Dates: start: 201901
  4. CANRENONE [Concomitant]
     Active Substance: CANRENONE
     Indication: Hypertension
     Dosage: LUVION*40CPR 50MG. SCHEMA POSOLOGICO: 1 CPR AL DI
     Route: 048
     Dates: start: 202106

REACTIONS (1)
  - Renal failure [Unknown]

NARRATIVE: CASE EVENT DATE: 20230701
